FAERS Safety Report 5209965-1 (Version None)
Quarter: 2006Q4

REPORT INFORMATION
  Report Type: 
  Country: None (occurrence: None)
  Receive Date: 20061129
  Receipt Date: 20050907
  Transmission Date: 20070319
  Serious: No
  Sender: FDA-Public Use
  Company Number: 2005UW13238

PATIENT
  Age: 49 Year
  Sex: Male

DRUGS (9)
  1. LISINOPRIL [Suspect]
  2. METOPROLOL SUCCINATE [Suspect]
  3. TENECTEPLASE ^BI PHARMA^ [Suspect]
  4. LASIX [Suspect]
  5. SOTALOL HYDROCHLORIDE [Suspect]
  6. MORPHINE [Suspect]
  7. NITROGLYCERIN [Suspect]
  8. HEPARIN [Concomitant]
  9. INTEGRILIN [Concomitant]

REACTIONS (2)
  - BRADYCARDIA [None]
  - HYPOTENSION [None]
